FAERS Safety Report 4517076-3 (Version None)
Quarter: 2004Q4

REPORT INFORMATION
  Report Type: 
  Country: None (occurrence: None)
  Receive Date: 20041202
  Receipt Date: 20041122
  Transmission Date: 20050328
  Serious: Yes (Hospitalization, Other)
  Sender: FDA-Public Use
  Company Number: US-ABBOTT-04P-163-0281255-00

PATIENT
  Sex: Female
  Weight: 86.26 kg

DRUGS (15)
  1. HUMIRA [Suspect]
     Indication: RHEUMATOID ARTHRITIS
     Route: 058
     Dates: start: 20040101, end: 20040201
  2. HUMIRA [Suspect]
     Route: 058
     Dates: start: 20040501, end: 20040601
  3. HUMIRA [Suspect]
     Route: 058
     Dates: start: 20040701, end: 20040901
  4. HUMIRA [Suspect]
     Route: 058
     Dates: start: 20040901, end: 20041001
  5. CELECOXIB [Concomitant]
     Indication: ARTHRITIS
     Route: 048
  6. PREDNISONE [Concomitant]
     Indication: ARTHRITIS
     Route: 048
  7. DILTIAZEM HYDROCHLORIDE [Concomitant]
     Indication: DRUG USE FOR UNKNOWN INDICATION
     Route: 048
  8. FUROSEMIDE [Concomitant]
     Indication: HYPERTENSION
     Route: 048
     Dates: start: 20020101
  9. VALSARTAN [Concomitant]
     Indication: DRUG USE FOR UNKNOWN INDICATION
     Route: 048
  10. METOPROLOL SUCCINATE [Concomitant]
     Indication: DRUG USE FOR UNKNOWN INDICATION
     Route: 048
  11. DOXEPIN HCL [Concomitant]
     Indication: DRUG USE FOR UNKNOWN INDICATION
     Route: 048
  12. PAROXETINE HYDROCHLORIDE [Concomitant]
     Indication: ANXIETY
     Route: 048
  13. METHOTREXATE [Concomitant]
     Indication: ARTHRITIS
     Route: 048
  14. HYDROCODONE [Concomitant]
     Indication: PAIN
     Route: 048
  15. CONJUGATED ESTROGEN [Concomitant]
     Indication: HORMONE REPLACEMENT THERAPY
     Route: 048

REACTIONS (6)
  - ANKLE FRACTURE [None]
  - BONE INFECTION [None]
  - CELLULITIS [None]
  - LOCALISED INFECTION [None]
  - STAPHYLOCOCCAL INFECTION [None]
  - STRESS FRACTURE [None]
